FAERS Safety Report 9072624 (Version 1)
Quarter: 2013Q1

REPORT INFORMATION
  Report Type: Report from Study
  Country: US (occurrence: US)
  Receive Date: 20130129
  Receipt Date: 20130129
  Transmission Date: 20140127
  Serious: No
  Sender: FDA-Public Use
  Company Number: US-ABBOTT-12P-163-0920622-00

PATIENT
  Age: 37 Year
  Sex: Female

DRUGS (8)
  1. HUMIRA 40 MG/0.8 ML PEN [Suspect]
     Indication: ANKYLOSING SPONDYLITIS
     Dates: start: 20120318
  2. SEASONALE [Concomitant]
     Indication: ORAL CONTRACEPTION
     Dosage: DAILY
  3. PRESTIQUE [Concomitant]
     Indication: BIPOLAR DISORDER
  4. WELLBUTRIN XL [Concomitant]
     Indication: BIPOLAR DISORDER
  5. OMEPRAZOLE [Concomitant]
     Indication: GASTRITIS
  6. XANAX [Concomitant]
     Indication: ANXIETY
  7. SEROQUEL [Concomitant]
     Indication: BIPOLAR DISORDER
     Dosage: AT BEDTIME
  8. SIMVASTATIN [Concomitant]
     Indication: BLOOD CHOLESTEROL INCREASED

REACTIONS (2)
  - Injection site pain [Recovered/Resolved]
  - Injection site haemorrhage [Recovered/Resolved]
